FAERS Safety Report 7237339-0 (Version None)
Quarter: 2011Q1

REPORT INFORMATION
  Report Type: 
  Country: None (occurrence: None)
  Receive Date: 20110111
  Receipt Date: 20101213
  Transmission Date: 20110831
  Serious: Yes (Death, Life-Threatening, Hospitalization)
  Sender: FDA-Public Use
  Company Number: ES-021566

PATIENT
  Age: 79 Year
  Sex: Male

DRUGS (1)
  1. (CHLORAMBUCIL) [Suspect]
     Indication: CHRONIC LYMPHOCYTIC LEUKAEMIA
     Dosage: 20 MG QD
     Dates: start: 20101011

REACTIONS (3)
  - HYPONATRAEMIA [None]
  - PNEUMONIA [None]
  - BLOOD CREATININE DECREASED [None]
